FAERS Safety Report 17545630 (Version 1)
Quarter: 2020Q1

REPORT INFORMATION
  Report Type: Spontaneous
  Country: US (occurrence: US)
  Receive Date: 20200315
  Receipt Date: 20200315
  Transmission Date: 20200409
  Serious: Yes (Other)
  Sender: FDA-Public Use
  Company Number: None

PATIENT
  Age: 71 Year
  Sex: Male
  Weight: 66.6 kg

DRUGS (10)
  1. ASPIRIN. [Concomitant]
     Active Substance: ASPIRIN
  2. BIOTIN [Concomitant]
     Active Substance: BIOTIN
  3. INSULIN [Concomitant]
     Active Substance: INSULIN NOS
  4. NORVASC [Concomitant]
     Active Substance: AMLODIPINE BESYLATE
  5. VITAMIN B12 [Concomitant]
     Active Substance: CYANOCOBALAMIN
  6. TRULICITY [Concomitant]
     Active Substance: DULAGLUTIDE
  7. FAMODITINE [Concomitant]
     Active Substance: FAMOTIDINE
  8. TRULICITY [Suspect]
     Active Substance: DULAGLUTIDE
     Indication: GLYCOSYLATED HAEMOGLOBIN
     Dosage: ?          QUANTITY:1 PEN NEEDLE;OTHER FREQUENCY:ONCE WEEKLY;OTHER ROUTE:INJECTION?
  9. METFORMIN [Concomitant]
     Active Substance: METFORMIN HYDROCHLORIDE
  10. EYLEA [Concomitant]
     Active Substance: AFLIBERCEPT

REACTIONS (2)
  - Gait disturbance [None]
  - Myalgia [None]

NARRATIVE: CASE EVENT DATE: 20200222
